FAERS Safety Report 17111474 (Version 7)
Quarter: 2020Q4

REPORT INFORMATION
  Report Type: Report from Study
  Country: None (occurrence: US)
  Receive Date: 20191204
  Receipt Date: 20201123
  Transmission Date: 20210113
  Serious: Yes (Other)
  Sender: FDA-Public Use
  Company Number: US-ABBVIE-19K-163-3178848-00

PATIENT
  Age: 64 Year
  Sex: Female
  Weight: 73.55 kg

DRUGS (13)
  1. HUMIRA [Suspect]
     Active Substance: ADALIMUMAB
     Indication: RHEUMATOID ARTHRITIS
     Route: 058
     Dates: start: 20190527, end: 201911
  2. METFORMIN [Concomitant]
     Active Substance: METFORMIN HYDROCHLORIDE
     Indication: DIABETES MELLITUS
  3. SERTRALINE [Concomitant]
     Active Substance: SERTRALINE HYDROCHLORIDE
     Indication: DEPRESSION
  4. VITAMIN C [Concomitant]
     Active Substance: ASCORBIC ACID
     Indication: VITAMIN SUPPLEMENTATION
  5. HUMIRA [Suspect]
     Active Substance: ADALIMUMAB
     Route: 058
     Dates: start: 202005
  6. ALENDRONATE SODIUM. [Concomitant]
     Active Substance: ALENDRONATE SODIUM
     Indication: OSTEOPOROSIS
  7. VITAMIN D [Concomitant]
     Active Substance: VITAMIN D NOS
     Indication: VITAMIN SUPPLEMENTATION
  8. LEVOTHYROXINE. [Concomitant]
     Active Substance: LEVOTHYROXINE
     Indication: THYROID DISORDER
  9. PRAVASTATIN. [Concomitant]
     Active Substance: PRAVASTATIN
     Indication: BLOOD CHOLESTEROL INCREASED
  10. MAGNESIUM [Concomitant]
     Active Substance: MAGNESIUM
     Indication: MINERAL SUPPLEMENTATION
  11. HUMIRA [Suspect]
     Active Substance: ADALIMUMAB
     Route: 058
     Dates: start: 2019, end: 202005
  12. ATORVASTATIN [Concomitant]
     Active Substance: ATORVASTATIN
     Indication: PRODUCT USED FOR UNKNOWN INDICATION
     Dosage: DOSED DOUBLED
  13. LISINOPRIL. [Concomitant]
     Active Substance: LISINOPRIL
     Indication: HYPERTENSION

REACTIONS (27)
  - Abnormal sensation in eye [Unknown]
  - Impaired work ability [Not Recovered/Not Resolved]
  - Procedural pain [Unknown]
  - Ankle fracture [Unknown]
  - Injection site bruising [Unknown]
  - Weight increased [Not Recovered/Not Resolved]
  - Fatigue [Unknown]
  - Rheumatoid arthritis [Not Recovered/Not Resolved]
  - Injury associated with device [Unknown]
  - Foot deformity [Unknown]
  - Foot deformity [Recovered/Resolved]
  - Dry eye [Not Recovered/Not Resolved]
  - Cough [Unknown]
  - Seasonal allergy [Unknown]
  - Mobility decreased [Unknown]
  - Foot fracture [Unknown]
  - Back pain [Recovering/Resolving]
  - Foot fracture [Recovered/Resolved]
  - Oropharyngeal pain [Unknown]
  - Peripheral swelling [Recovering/Resolving]
  - Glycosylated haemoglobin increased [Unknown]
  - Eye discharge [Unknown]
  - Foot deformity [Recovering/Resolving]
  - Gait disturbance [Not Recovered/Not Resolved]
  - Post procedural swelling [Not Recovered/Not Resolved]
  - Erythema [Recovered/Resolved]
  - Device issue [Unknown]

NARRATIVE: CASE EVENT DATE: 2019
